FAERS Safety Report 4322529-7 (Version None)
Quarter: 2004Q1

REPORT INFORMATION
  Report Type: 
  Country: None (occurrence: None)
  Receive Date: 20040324
  Receipt Date: 20040218
  Transmission Date: 20041129
  Serious: Yes (Hospitalization)
  Sender: FDA-Public Use
  Company Number: 200412837GDDC

PATIENT
  Age: 52 Year
  Sex: Male

DRUGS (4)
  1. LANTUS [Suspect]
     Indication: DIABETES MELLITUS NON-INSULIN-DEPENDENT
     Route: 058
     Dates: start: 20030903
  2. TRENTAL [Concomitant]
     Indication: ANGIOPATHY
     Route: 048
     Dates: start: 20030201
  3. TRENTAL [Concomitant]
     Indication: PROPHYLAXIS
     Route: 048
     Dates: start: 20030201
  4. PHARMATON [Concomitant]
     Indication: GENERAL NUTRITION DISORDER
     Dosage: DOSE: 1 CAP
     Route: 048
     Dates: start: 19840101

REACTIONS (7)
  - DIABETES MELLITUS INADEQUATE CONTROL [None]
  - ERYSIPELAS [None]
  - MEDICATION ERROR [None]
  - OEDEMA PERIPHERAL [None]
  - OVERDOSE [None]
  - THROMBOSIS [None]
  - WEIGHT INCREASED [None]
